FAERS Safety Report 11887033 (Version 1)
Quarter: 2016Q1

REPORT INFORMATION
  Report Type: Spontaneous
  Country: US (occurrence: US)
  Receive Date: 20160104
  Receipt Date: 20160104
  Transmission Date: 20160526
  Serious: No
  Sender: FDA-Public Use
  Company Number: US-TEVA-620433USA

PATIENT
  Age: 51 Year
  Sex: Female
  Weight: 86.26 kg

DRUGS (2)
  1. PROAIR HFA [Suspect]
     Active Substance: ALBUTEROL SULFATE
     Indication: BRONCHITIS CHRONIC
     Route: 055
     Dates: start: 20151215
  2. PROAIR HFA [Suspect]
     Active Substance: ALBUTEROL SULFATE
     Indication: WHEEZING

REACTIONS (1)
  - Tongue discolouration [Not Recovered/Not Resolved]

NARRATIVE: CASE EVENT DATE: 20151218
